FAERS Safety Report 4588442-5 (Version None)
Quarter: 2005Q1

REPORT INFORMATION
  Report Type: 
  Country: None (occurrence: None)
  Receive Date: 20050216
  Receipt Date: 20050201
  Transmission Date: 20050727
  Serious: Yes (Other)
  Sender: FDA-Public Use
  Company Number: US_010464511

PATIENT
  Age: 70 Year
  Sex: Male
  Weight: 77 kg

DRUGS (11)
  1. HUMALOG [Suspect]
     Indication: DIABETES MELLITUS
     Dates: start: 19980101
  2. HUMULIN N [Suspect]
     Indication: DIABETES MELLITUS
     Dosage: 15 U/DAY
     Dates: start: 19980101
  3. REGULAR ILETIN II (PORK) [Suspect]
     Indication: DIABETES MELLITUS
     Dates: end: 19980101
  4. ILETIN [Suspect]
     Indication: DIABETES MELLITUS
  5. HUMULIN R [Suspect]
     Dates: end: 19980101
  6. ZOCOR [Concomitant]
  7. PLAVIX [Concomitant]
  8. CELEXA [Concomitant]
  9. VIOXX [Concomitant]
  10. LEVOXYL [Concomitant]
  11. SYNTHROID [Concomitant]

REACTIONS (13)
  - ARTHRALGIA [None]
  - ARTHRITIS [None]
  - BLOOD GLUCOSE DECREASED [None]
  - BLOOD GLUCOSE INCREASED [None]
  - CEREBRAL ARTERY STENOSIS [None]
  - COUGH [None]
  - HYPOACUSIS [None]
  - HYPOTHYROIDISM [None]
  - NASOPHARYNGITIS [None]
  - NECK PAIN [None]
  - PAIN IN EXTREMITY [None]
  - PSYCHOMOTOR HYPERACTIVITY [None]
  - PYREXIA [None]
